FAERS Safety Report 7778263-4 (Version None)
Quarter: 2011Q3

REPORT INFORMATION
  Report Type: 
  Country: None (occurrence: None)
  Receive Date: 20110926
  Receipt Date: 20110921
  Transmission Date: 20111222
  Serious: Yes (Other)
  Sender: FDA-Public Use
  Company Number: US-BAYER-2011-083157

PATIENT
  Age: 67 Year
  Sex: Female

DRUGS (3)
  1. NEXAVAR [Suspect]
     Indication: PANCREATIC CARCINOMA
     Dosage: 200 MG, BID 4 DAYS A WEEK
     Route: 048
     Dates: start: 20110801, end: 20110901
  2. NEXAVAR [Suspect]
     Dosage: 200 MG BID DAY BEFORE/DAY OF AND DAY AFTER IV CHEMOTHERAPY
     Dates: start: 20110901
  3. TPN [Concomitant]
     Route: 042

REACTIONS (3)
  - SKIN EXFOLIATION [None]
  - APHAGIA [None]
  - BURNING SENSATION [None]
